FAERS Safety Report 9739324 (Version 2)
Quarter: 2013Q4

REPORT INFORMATION
  Report Type: Report from Study
  Country: US (occurrence: US)
  Receive Date: 20131209
  Receipt Date: 20131227
  Transmission Date: 20140711
  Serious: Yes (Hospitalization)
  Sender: FDA-Public Use
  Company Number: US-B.I. PHARMACEUTICALS,INC./RIDGEFIELD-2013-BI-40277BI

PATIENT
  Age: 68 Year
  Sex: Female

DRUGS (19)
  1. GILOTRIF [Suspect]
     Indication: NON-SMALL CELL LUNG CANCER
     Dosage: 40 MG
     Route: 048
     Dates: start: 20131120, end: 20131220
  2. GILOTRIF [Suspect]
     Indication: LUNG NEOPLASM MALIGNANT
  3. AVELOX [Concomitant]
     Dosage: 400 MG
  4. WOMEN^S CENTRUM [Concomitant]
  5. CALCIUM 600 + VITAMIN D [Concomitant]
  6. ASA [Concomitant]
  7. PRILOSEC DR [Concomitant]
  8. ZOFRAN [Concomitant]
  9. PHENERGAN [Concomitant]
  10. LASIX [Concomitant]
  11. POTASSIUM [Concomitant]
  12. STEROID [Concomitant]
     Indication: RADIOTHERAPY
  13. LOMOTIL [Concomitant]
  14. BLOOD PRESSURE MEDICATION MEDICATION UNKNOWN [Concomitant]
  15. CENTRUM COMPLETE MULTIVIT [Concomitant]
  16. ZOLOFT [Concomitant]
  17. AMLODIPINE BESYLATE [Concomitant]
  18. EQL MILK OF MAGNESIA SUSP [Concomitant]
  19. VALIUM [Concomitant]

REACTIONS (8)
  - Pneumonia [Not Recovered/Not Resolved]
  - Diarrhoea [Recovered/Resolved]
  - Fatigue [Unknown]
  - Diarrhoea [Not Recovered/Not Resolved]
  - Nausea [Not Recovered/Not Resolved]
  - Diarrhoea [Unknown]
  - Gastrointestinal disorder [Unknown]
  - Skin disorder [Unknown]
